FAERS Safety Report 12292768 (Version 1)
Quarter: 2016Q2

REPORT INFORMATION
  Report Type: Report from Study
  Country: US (occurrence: US)
  Receive Date: 20160421
  Receipt Date: 20160421
  Transmission Date: 20160815
  Serious: No
  Sender: FDA-Public Use
  Company Number: US-AMGEN-USASL2016025843

PATIENT
  Age: 72 Year
  Sex: Female
  Weight: 73.92 kg

DRUGS (1)
  1. REPATHA [Suspect]
     Active Substance: EVOLOCUMAB
     Indication: HYPERCHOLESTEROLAEMIA
     Dosage: 140 MG, Q2WK
     Route: 058
     Dates: start: 20160211, end: 20160226

REACTIONS (1)
  - Device issue [Recovered/Resolved]

NARRATIVE: CASE EVENT DATE: 20160226
